FAERS Safety Report 12134670 (Version 5)
Quarter: 2016Q2

REPORT INFORMATION
  Report Type: Report from Study
  Country: AU (occurrence: AU)
  Receive Date: 20160301
  Receipt Date: 20160609
  Transmission Date: 20160815
  Serious: Yes (Other)
  Sender: FDA-Public Use
  Company Number: AU-ABBVIE-16P-008-1568404-00

PATIENT
  Age: 81 Year
  Sex: Male

DRUGS (1)
  1. LUCRIN DEPOT [Suspect]
     Active Substance: LEUPROLIDE ACETATE
     Indication: PROSTATE CANCER
     Route: 065
     Dates: start: 20140801

REACTIONS (4)
  - Bladder transitional cell carcinoma [Unknown]
  - Lethargy [Unknown]
  - Fatigue [Unknown]
  - Bladder cancer [Unknown]

NARRATIVE: CASE EVENT DATE: 201410
